FAERS Safety Report 15935571 (Version 2)
Quarter: 2019Q1

REPORT INFORMATION
  Report Type: Spontaneous
  Country: FR (occurrence: FR)
  Receive Date: 20190208
  Receipt Date: 20190212
  Transmission Date: 20190417
  Serious: Yes (Death)
  Sender: FDA-Public Use
  Company Number: FR-ACCORD-106135

PATIENT
  Age: 70 Year
  Sex: Female
  Weight: 93 kg

DRUGS (12)
  1. KARDEGIC [Suspect]
     Active Substance: ASPIRIN DL-LYSINE
     Indication: ATRIAL FIBRILLATION
     Dosage: STRENGTH: 75 MG, IN SACHET-DOSE
     Route: 048
     Dates: start: 20180409, end: 20180413
  2. IRON [Concomitant]
     Active Substance: IRON
  3. RILMENIDINE/RILMENIDINE PHOSPHATE [Concomitant]
  4. ATENOLOL/ATENOLOL HYDROCHLORIDE [Concomitant]
  5. ATORVASTATIN/ATORVASTATIN CALCIUM [Suspect]
     Active Substance: ATORVASTATIN CALCIUM
     Indication: DYSLIPIDAEMIA
     Route: 048
  6. METFORMIN [Concomitant]
     Active Substance: METFORMIN HYDROCHLORIDE
  7. FLECAINE [Concomitant]
     Active Substance: FLECAINIDE
  8. ELIQUIS [Suspect]
     Active Substance: APIXABAN
     Indication: ATRIAL FIBRILLATION
     Dosage: STRENGTH: 5 MG
     Route: 048
     Dates: start: 20180413, end: 20180413
  9. HEPARINE SODIQUE PANPHARMA [Suspect]
     Active Substance: HEPARIN SODIUM
     Indication: ATRIAL FIBRILLATION
     Route: 042
     Dates: start: 20180409, end: 20180413
  10. ALLOPURINOL. [Concomitant]
     Active Substance: ALLOPURINOL
  11. LOSARTAN. [Concomitant]
     Active Substance: LOSARTAN
  12. INDAPAMIDE. [Concomitant]
     Active Substance: INDAPAMIDE

REACTIONS (3)
  - Subarachnoid haemorrhage [Fatal]
  - Intracranial haematoma [Fatal]
  - Subdural haematoma [Fatal]

NARRATIVE: CASE EVENT DATE: 20180413
